FAERS Safety Report 5267369-X (Version None)
Quarter: 2007Q1

REPORT INFORMATION
  Report Type: 
  Country: None (occurrence: None)
  Receive Date: 20070316
  Receipt Date: 20070312
  Transmission Date: 20070707
  Serious: Yes (Death, Hospitalization)
  Sender: FDA-Public Use
  Company Number: 2006AP05881

PATIENT
  Age: 20907 Day
  Sex: Male
  Weight: 58 kg

DRUGS (17)
  1. MEROPEN [Suspect]
     Indication: PNEUMONIA
     Route: 041
     Dates: start: 20051231, end: 20060106
  2. OMEPRAL [Suspect]
     Indication: DUODENAL ULCER PERFORATION
     Route: 040
     Dates: start: 20051230, end: 20060106
  3. PANSPORIN [Suspect]
     Indication: DUODENAL ULCER PERFORATION
     Dosage: 1G 2-4 TIMES/DAY
     Route: 041
     Dates: start: 20051230, end: 20051231
  4. PL [Suspect]
     Indication: UPPER RESPIRATORY TRACT INFLAMMATION
     Route: 048
     Dates: start: 20060119, end: 20060121
  5. PROPOFOL [Suspect]
     Indication: SEDATION
     Dosage: SUSTAINED
     Route: 041
     Dates: start: 20051231, end: 20060109
  6. HALOPERIDOL [Suspect]
     Indication: SEDATION
     Route: 030
     Dates: start: 20060103, end: 20060106
  7. TAKEPRON [Suspect]
     Indication: DUODENAL ULCER PERFORATION
     Route: 045
     Dates: start: 20060106, end: 20060126
  8. TAKEPRON [Suspect]
     Route: 048
     Dates: start: 20060113, end: 20060126
  9. TOCLASE [Suspect]
     Indication: UPPER RESPIRATORY TRACT INFLAMMATION
     Route: 048
     Dates: start: 20060119, end: 20060121
  10. VOLTAREN [Concomitant]
     Indication: ANALGESIC THERAPY
     Route: 054
     Dates: start: 20051229, end: 20051229
  11. LEPETAN [Concomitant]
     Indication: ANALGESIC THERAPY
     Route: 030
     Dates: start: 20051229, end: 20051229
  12. HORIZON [Concomitant]
     Indication: SEDATION
     Route: 040
     Dates: start: 20051231, end: 20051231
  13. VANMYCIN [Concomitant]
     Indication: STAPHYLOCOCCAL INFECTION
     Route: 041
     Dates: start: 20060106, end: 20060110
  14. VANMYCIN [Concomitant]
     Route: 041
     Dates: start: 20060124, end: 20060220
  15. GOODMIN [Concomitant]
     Indication: INSOMNIA
     Route: 048
     Dates: start: 20060114, end: 20060115
  16. MYSLEE [Concomitant]
     Indication: INSOMNIA
     Route: 048
     Dates: start: 20060116, end: 20060117
  17. NITRAZEPAM [Concomitant]
     Indication: INSOMNIA
     Route: 048
     Dates: start: 20060118, end: 20060118

REACTIONS (3)
  - LIVER DISORDER [None]
  - SEPSIS [None]
  - TOXIC EPIDERMAL NECROLYSIS [None]
